FAERS Safety Report 7126367-1 (Version None)
Quarter: 2010Q4

REPORT INFORMATION
  Report Type: 
  Country: None (occurrence: None)
  Receive Date: 20101129
  Receipt Date: 20101112
  Transmission Date: 20110411
  Serious: Yes (Hospitalization)
  Sender: FDA-Public Use
  Company Number: IT-CELGENEUS-083-21880-10111734

PATIENT
  Sex: Female
  Weight: 75 kg

DRUGS (6)
  1. REVLIMID [Suspect]
     Indication: THYROID CANCER
     Route: 048
     Dates: start: 20101028, end: 20101110
  2. PACLITAXEL [Suspect]
     Indication: THYROID CANCER
     Route: 051
     Dates: start: 20101028, end: 20101104
  3. ASPIRIN [Suspect]
     Indication: THROMBOSIS PROPHYLAXIS
     Route: 048
     Dates: start: 20101028, end: 20101110
  4. EUTIROX [Concomitant]
     Indication: THYROXINE
     Route: 048
     Dates: start: 20001201
  5. IDROQUARK [Concomitant]
     Indication: HYPERTENSION
     Route: 048
     Dates: start: 20070101
  6. GLUCOPHAGE [Concomitant]
     Indication: DIABETES MELLITUS
     Route: 048
     Dates: start: 20040101

REACTIONS (1)
  - PULMONARY HAEMORRHAGE [None]
